FAERS Safety Report 9730374 (Version 1)
Quarter: 2013Q4

REPORT INFORMATION
  Report Type: Report from Study
  Country: US (occurrence: US)
  Receive Date: 20131204
  Receipt Date: 20131204
  Transmission Date: 20140711
  Serious: Yes (Other)
  Sender: FDA-Public Use
  Company Number: US-ROCHE-1313811

PATIENT
  Sex: Female

DRUGS (7)
  1. LUCENTIS [Suspect]
     Indication: AGE-RELATED MACULAR DEGENERATION
     Route: 065
  2. LOSARTAN [Concomitant]
     Dosage: DAILY
     Route: 065
  3. HYDROCHLOROTHIAZIDE [Concomitant]
     Dosage: DAILY
     Route: 065
  4. LATANOPROST [Concomitant]
     Dosage: 1 DROP DAILY EACH EYE
     Route: 065
  5. VITAMIN B12 [Concomitant]
     Route: 060
  6. XOPENEX HFA [Concomitant]
     Indication: ASTHMA
     Route: 065
  7. XOPENEX HFA [Concomitant]
     Indication: CHRONIC OBSTRUCTIVE PULMONARY DISEASE

REACTIONS (2)
  - Aortic aneurysm [Unknown]
  - Hypoacusis [Unknown]
